FAERS Safety Report 16808663 (Version 3)
Quarter: 2019Q4

REPORT INFORMATION
  Report Type: Spontaneous
  Country: DE (occurrence: DE)
  Receive Date: 20190916
  Receipt Date: 20191124
  Transmission Date: 20200122
  Serious: Yes (Hospitalization, Other)
  Sender: FDA-Public Use
  Company Number: DE-DEXPHARM-20190789

PATIENT
  Age: 59 Year
  Sex: Female
  Weight: 103 kg

DRUGS (18)
  1. IODINE. [Concomitant]
     Active Substance: IODINE
     Indication: GOITRE
     Dosage: 200 MG, QD SINCE YEARS
     Route: 048
     Dates: start: 2000, end: 2000
  2. VOTUM [Concomitant]
     Dosage: 0.5 DF, QD (10MG) MORNING
     Route: 065
     Dates: start: 2005
  3. VALSARTAN 1A PHARMA [Suspect]
     Active Substance: VALSARTAN
     Dosage: 1 DF 80 MG , QD (MORNINGS)
     Dates: start: 20141202, end: 201808
  4. HYDROCHLOROTHIAZIDE. [Concomitant]
     Active Substance: HYDROCHLOROTHIAZIDE
     Indication: HYPERTENSION
     Dosage: 12.5 MG, UNK
     Route: 048
  5. ZINC. [Concomitant]
     Active Substance: ZINC
     Route: 065
  6. VALSARTAN. [Suspect]
     Active Substance: VALSARTAN
     Indication: HYPERTENSION
     Dosage: 92.5 MG, UNK (IN THE MORNINGS)
     Route: 048
     Dates: start: 2006
  7. VALSARTAN. [Suspect]
     Active Substance: VALSARTAN
     Indication: HYPERTENSION
     Dosage: 1 DF (80/12.5 MG), QD (MORNING)
     Route: 065
  8. CLARITHROMYCIN. [Suspect]
     Active Substance: CLARITHROMYCIN
     Route: 065
  9. HEPARIN [Concomitant]
     Active Substance: HEPARIN SODIUM
     Indication: LYMPHADENECTOMY
     Route: 005
  10. DICLOFENAC [Suspect]
     Active Substance: DICLOFENAC
     Route: 065
  11. DOXYCYLINE [Suspect]
     Active Substance: DOXYCYCLINE
     Route: 065
  12. VALSARTAN 1A PHARMA PLUS [Suspect]
     Active Substance: HYDROCHLOROTHIAZIDE\VALSARTAN
     Dosage: 1 DF 80/12.5 MG , QD (MORNINGS)
  13. OMEGA 3 [Concomitant]
     Active Substance: OMEGA-3 FATTY ACIDS
     Route: 065
  14. IBUPROFEN RATIOPHARM [Concomitant]
     Indication: PAIN
     Dosage: 400 MG, QD (IN THE MORNING)
     Route: 065
  15. VALDOXAN [Concomitant]
     Active Substance: AGOMELATINE
     Dosage: 25 MG, QD (MORNING)
     Route: 065
     Dates: start: 20120116
  16. PROPOFOL. [Suspect]
     Active Substance: PROPOFOL
     Route: 065
  17. PENICILLIN [Suspect]
     Active Substance: PENICILLIN
     Route: 065
  18. PANTOPRAZOLE HEXAL [Concomitant]
     Dosage: 40 MG, QD (MORNING)

REACTIONS (30)
  - Cough [Unknown]
  - Myelopathy [Unknown]
  - Procedural complication [Unknown]
  - Constipation [Unknown]
  - Pain [Recovering/Resolving]
  - Urinary incontinence [Recovering/Resolving]
  - Dysuria [Recovered/Resolved]
  - Anal incontinence [Recovering/Resolving]
  - Polyarthritis [Not Recovered/Not Resolved]
  - Carpal tunnel syndrome [Unknown]
  - Sleep disorder [Unknown]
  - Sneezing [Unknown]
  - Asthenia [Unknown]
  - Urinary tract infection enterococcal [Recovered/Resolved]
  - Fatigue [Unknown]
  - Bladder spasm [Unknown]
  - Spinal cord disorder [Unknown]
  - Lymphoedema [Unknown]
  - Polyuria [Unknown]
  - Thrombosis [Unknown]
  - Spinal pain [Unknown]
  - Back pain [Unknown]
  - Endometrial cancer [Recovered/Resolved]
  - Vaginal haemorrhage [Not Recovered/Not Resolved]
  - Fibromyalgia [Unknown]
  - Lipoedema [Unknown]
  - Osteoarthritis [Not Recovered/Not Resolved]
  - Drug hypersensitivity [Unknown]
  - General physical health deterioration [Unknown]
  - Fistula discharge [Recovering/Resolving]

NARRATIVE: CASE EVENT DATE: 2006
